FAERS Safety Report 9078818 (Version 1)
Quarter: 2013Q1

REPORT INFORMATION
  Report Type: Report from Study
  Country: US (occurrence: US)
  Receive Date: 20130130
  Receipt Date: 20130130
  Transmission Date: 20140127
  Serious: No
  Sender: FDA-Public Use
  Company Number: US-ABBOTT-12P-163-0976834-00

PATIENT
  Age: 63 Year
  Sex: Female

DRUGS (6)
  1. HUMIRA [Suspect]
     Indication: PSORIASIS
     Dates: start: 201201, end: 20120625
  2. CLONAZEPAM [Concomitant]
     Indication: INSOMNIA
     Dosage: DAILY
  3. AMITRIPTYLINE [Concomitant]
     Indication: INSOMNIA
     Dosage: DAILY
  4. PAROXETINE [Concomitant]
     Indication: INSOMNIA
     Dosage: DAILY
  5. ZOLPIDEM [Concomitant]
     Indication: INSOMNIA
     Dosage: DAILY
  6. LISINOPRIL [Concomitant]
     Indication: HYPERTENSION
     Dosage: 5-10 MG DAILY

REACTIONS (1)
  - Impaired healing [Recovering/Resolving]
